FAERS Safety Report 21588007 (Version 1)
Quarter: 2022Q4

REPORT INFORMATION
  Report Type: Report from Study
  Country: US (occurrence: US)
  Receive Date: 20221114
  Receipt Date: 20221114
  Transmission Date: 20230113
  Serious: No
  Sender: FDA-Public Use
  Company Number: US-ABBVIE-4139981

PATIENT
  Sex: Female

DRUGS (6)
  1. HUMIRA [Suspect]
     Active Substance: ADALIMUMAB
     Indication: Crohn^s disease
     Route: 058
  2. ESOMEPRAZOLE [Concomitant]
     Active Substance: ESOMEPRAZOLE
     Indication: Product used for unknown indication
     Dosage: CPD
  3. METOPROLOL T [Concomitant]
     Indication: Product used for unknown indication
  4. ISOSORBIDE D [Concomitant]
     Indication: Product used for unknown indication
  5. SULFASALAZINE DELAYED-RELEASE [Concomitant]
     Active Substance: SULFASALAZINE
     Indication: Product used for unknown indication
  6. DOCUSATE SOD [Concomitant]
     Indication: Product used for unknown indication

REACTIONS (1)
  - Injection site reaction [Unknown]
